FAERS Safety Report 6254970-X (Version None)
Quarter: 2009Q3

REPORT INFORMATION
  Report Type: 
  Country: None (occurrence: None)
  Receive Date: 20090702
  Receipt Date: 20090625
  Transmission Date: 20100115
  Serious: Yes (Hospitalization, Disabling, Other)
  Sender: FDA-Public Use
  Company Number: US-MERCK-0711USA04384

PATIENT
  Age: 56 Year
  Sex: Male
  Weight: 65 kg

DRUGS (3)
  1. FOSAMAX [Suspect]
     Indication: OSTEOPOROSIS
     Route: 048
     Dates: start: 20000901, end: 20040826
  2. FOSAMAX [Suspect]
     Route: 048
     Dates: start: 20000901
  3. PREDNISONE [Suspect]
     Route: 065

REACTIONS (24)
  - ACTINOMYCOSIS [None]
  - ANXIETY [None]
  - APHASIA [None]
  - ARTHROPATHY [None]
  - ASTHMA [None]
  - CHILLS [None]
  - CHRONIC OBSTRUCTIVE PULMONARY DISEASE [None]
  - DECREASED APPETITE [None]
  - DENTAL CARIES [None]
  - DEPRESSION [None]
  - FALL [None]
  - FISTULA [None]
  - JAW DISORDER [None]
  - JAW FRACTURE [None]
  - LIBIDO DECREASED [None]
  - LUNG DISORDER [None]
  - OPEN WOUND [None]
  - OSTEOMYELITIS [None]
  - OSTEONECROSIS [None]
  - PERIODONTAL DISEASE [None]
  - PRODUCTIVE COUGH [None]
  - PYREXIA [None]
  - RADIATION INJURY [None]
  - TEMPOROMANDIBULAR JOINT SYNDROME [None]
